FAERS Safety Report 20833386 (Version 1)
Quarter: 2022Q2

REPORT INFORMATION
  Report Type: 
  Country: None (occurrence: None)
  Receive Date: 20220516
  Receipt Date: 20220516
  Transmission Date: 20220721
  Serious: No
  Sender: FDA-Public Use
  Company Number: AU-ROCHE-2949587

PATIENT
  Age: 43 Year
  Weight: 117 kg

DRUGS (17)
  1. TIRAGOLUMAB [Suspect]
     Active Substance: TIRAGOLUMAB
     Dates: start: 20210610
  2. ATEZOLIZUMAB [Suspect]
     Active Substance: ATEZOLIZUMAB
     Dates: start: 20210610
  3. CARBOPLATIN [Suspect]
     Active Substance: CARBOPLATIN
     Dates: start: 20210610
  4. PACLITAXEL [Suspect]
     Active Substance: PACLITAXEL
     Dates: start: 20210610
  5. DOXORUBICIN [Suspect]
     Active Substance: DOXORUBICIN
     Dates: start: 20210825
  6. CYCLOPHOSPHAMIDE [Suspect]
     Active Substance: CYCLOPHOSPHAMIDE
     Dates: start: 20210825
  7. PEGFILGRASTIM [Concomitant]
     Active Substance: PEGFILGRASTIM
     Dosage: 6 BEATS/MIN
     Dates: start: 20210923
  8. PEGFILGRASTIM [Concomitant]
     Active Substance: PEGFILGRASTIM
     Dosage: 6 BEATS/MIN
     Dates: start: 20210825
  9. PEGFILGRASTIM [Concomitant]
     Active Substance: PEGFILGRASTIM
     Dosage: 6 BEATS/MIN
     Dates: start: 20210908
  10. PEGFILGRASTIM [Concomitant]
     Active Substance: PEGFILGRASTIM
     Dosage: 6 BEATS/MIN
     Dates: start: 20211007
  11. ALDACTONE [Concomitant]
     Active Substance: SPIRONOLACTONE
  12. IRBESARTAN [Concomitant]
     Active Substance: IRBESARTAN
     Dates: start: 2019
  13. PANADOL [Concomitant]
     Active Substance: ACETAMINOPHEN
     Dates: start: 20210610
  14. PHENERGAN [Concomitant]
     Active Substance: PROMETHAZINE HYDROCHLORIDE
     Dates: start: 20210621
  15. TEMAZEPAM [Concomitant]
     Active Substance: TEMAZEPAM
     Dates: start: 20210707
  16. AUGMENTIN [Concomitant]
     Active Substance: AMOXICILLIN\CLAVULANATE POTASSIUM
     Dates: start: 20210723
  17. CARBIMAZOLE [Concomitant]
     Active Substance: CARBIMAZOLE
     Dates: start: 20210714

REACTIONS (1)
  - Hypopituitarism [None]

NARRATIVE: CASE EVENT DATE: 20211101
